FAERS Safety Report 4695985-2 (Version None)
Quarter: 2005Q2

REPORT INFORMATION
  Report Type: 
  Country: None (occurrence: None)
  Receive Date: 20050621
  Receipt Date: 20050613
  Transmission Date: 20051028
  Serious: Yes (Hospitalization)
  Sender: FDA-Public Use
  Company Number: PHRM2005FR01823

PATIENT
  Age: 77 Year
  Sex: Female

DRUGS (7)
  1. ALLOPURINOL [Suspect]
     Dosage: 300 MG, QD
     Route: 048
     Dates: start: 20050322, end: 20050406
  2. TAHOR [Concomitant]
     Indication: HYPERCHOLESTEROLAEMIA
  3. KARDEGIC [Concomitant]
  4. PRAXILENE [Concomitant]
  5. LASILIX [Concomitant]
  6. SECTRAL [Concomitant]
     Dosage: UNK, UNK
     Dates: start: 20030601
  7. TAREG [Suspect]
     Dosage: 160 MG, QD
     Route: 048
     Dates: end: 20050408

REACTIONS (7)
  - ACUTE CORONARY SYNDROME [None]
  - CHEST PAIN [None]
  - PRURIGO [None]
  - PRURITUS [None]
  - RASH ERYTHEMATOUS [None]
  - RASH MACULAR [None]
  - TOXIC SKIN ERUPTION [None]
